FAERS Safety Report 24613916 (Version 2)
Quarter: 2024Q4

REPORT INFORMATION
  Report Type: Spontaneous
  Country: US (occurrence: US)
  Receive Date: 20241113
  Receipt Date: 20241126
  Transmission Date: 20250115
  Serious: Yes (Hospitalization)
  Sender: TEVA
  Company Number: US-TEVA-VS-3262511

PATIENT
  Sex: Female

DRUGS (3)
  1. ACETAZOLAMIDE [Suspect]
     Active Substance: ACETAZOLAMIDE
     Indication: Idiopathic intracranial hypertension
     Route: 048
  2. PREDNISONE [Suspect]
     Active Substance: PREDNISONE
     Indication: Tolosa-Hunt syndrome
     Route: 048
  3. PREDNISONE [Suspect]
     Active Substance: PREDNISONE
     Indication: Tolosa-Hunt syndrome
     Route: 048

REACTIONS (5)
  - Rhabdomyolysis [Unknown]
  - Weight increased [Unknown]
  - Mood altered [Unknown]
  - Hypokalaemia [Unknown]
  - Acne [Unknown]
